FAERS Safety Report 6537439-4 (Version None)
Quarter: 2010Q1

REPORT INFORMATION
  Report Type: 
  Country: None (occurrence: None)
  Receive Date: 20100110
  Receipt Date: 20091228
  Transmission Date: 20100710
  Serious: Yes (Hospitalization)
  Sender: FDA-Public Use
  Company Number: DSA_42292_2010

PATIENT
  Age: 57 Year
  Sex: Male

DRUGS (6)
  1. DILTIAZEM HYDROCHLORIDE  (MONO TILDIEM LP - DILTIAZEM HCL) [Suspect]
     Indication: DRUG USE FOR UNKNOWN INDICATION
     Dosage: (300 MG QD ORAL)
     Route: 048
     Dates: end: 20070714
  2. DI-ANTALVIC /00016701/ (DI ANTALVIC DEXTROPROPOXYPHENE PARACETAMOL ) [Suspect]
     Indication: DRUG USE FOR UNKNOWN INDICATION
     Dosage: (30 MG TID ORAL)
     Route: 048
     Dates: start: 20070710, end: 20070712
  3. XYLOCAINE /00033402/ [Concomitant]
  4. HYZAAR /01284801/ [Concomitant]
  5. ZOCOR [Concomitant]
  6. XALATAN [Concomitant]

REACTIONS (12)
  - CONJUNCTIVITIS [None]
  - DEHYDRATION [None]
  - DIARRHOEA [None]
  - HEPATIC STEATOSIS [None]
  - HYPOTENSION [None]
  - INFLAMMATION [None]
  - PROTEUS INFECTION [None]
  - RASH MORBILLIFORM [None]
  - RENAL FAILURE ACUTE [None]
  - SWEAT GLAND TUMOUR [None]
  - THROMBOCYTOPENIA [None]
  - URINARY TRACT INFECTION [None]
